FAERS Safety Report 15049511 (Version 1)
Quarter: 2018Q2

REPORT INFORMATION
  Report Type: Spontaneous
  Country: US (occurrence: US)
  Receive Date: 20180622
  Receipt Date: 20180622
  Transmission Date: 20180711
  Serious: No
  Sender: FDA-Public Use
  Company Number: US-TEVA-2018-US-900770

PATIENT
  Sex: Female

DRUGS (1)
  1. ETHINYLESTRADIOL W/ETHYNODIOL [Suspect]
     Active Substance: ETHINYL ESTRADIOL\ETHYNODIOL
     Indication: HORMONE LEVEL ABNORMAL
     Dosage: DOSE STRENGTH:  1 MG/0.05 MG
     Route: 065

REACTIONS (2)
  - Hypertension [Unknown]
  - Product use in unapproved indication [Unknown]
